FAERS Safety Report 11025060 (Version 2)
Quarter: 2015Q2

REPORT INFORMATION
  Report Type: Spontaneous
  Country: CN (occurrence: None)
  Receive Date: 20150410
  Receipt Date: 20150504
  Transmission Date: 20150821
  Serious: Yes (Hospitalization, Disabling, Other)
  Sender: FDA-Public Use
  Company Number: 2015FE01101

PATIENT
  Age: 36 Year
  Sex: Female

DRUGS (1)
  1. PROPESS (DINOPROSTONE) VAGINAL DELIVERY SYSTEM, 10 MG [Suspect]
     Active Substance: DINOPROSTONE
     Indication: INDUCTION OF CERVIX RIPENING
     Route: 067
     Dates: start: 20150318, end: 20150318

REACTIONS (8)
  - Premature separation of placenta [None]
  - Lung disorder [None]
  - Disseminated intravascular coagulation [None]
  - Postpartum haemorrhage [None]
  - Brain injury [None]
  - Coma [None]
  - Precipitate labour [None]
  - Haemorrhage [None]

NARRATIVE: CASE EVENT DATE: 20150319
